FAERS Safety Report 18098517 (Version 1)
Quarter: 2020Q3

REPORT INFORMATION
  Report Type: Spontaneous
  Country: HR (occurrence: HR)
  Receive Date: 20200731
  Receipt Date: 20200731
  Transmission Date: 20201103
  Serious: Yes (Other)
  Sender: FDA-Public Use
  Company Number: HR-PFIZER INC-2020290484

PATIENT
  Sex: Female

DRUGS (2)
  1. PREGABALIN. [Suspect]
     Active Substance: PREGABALIN
     Dosage: 175 MG, 1X/DAY
     Route: 048
     Dates: start: 20200502, end: 20200502
  2. LYRICA [Suspect]
     Active Substance: PREGABALIN
     Dosage: 1400 MG, 1X/DAY (4 BLISTERS (56 HARD CAPSULES) OF LYRICA 25 MG)
     Route: 048
     Dates: start: 20200502, end: 20200502

REACTIONS (5)
  - Diarrhoea [Unknown]
  - Abdominal pain [Unknown]
  - Drug abuse [Unknown]
  - Suicide attempt [Unknown]
  - Intentional overdose [Unknown]

NARRATIVE: CASE EVENT DATE: 20200502
